FAERS Safety Report 5471557-7 (Version None)
Quarter: 2007Q3

REPORT INFORMATION
  Report Type: 
  Country: None (occurrence: None)
  Receive Date: 20070928
  Receipt Date: 20070131
  Transmission Date: 20080115
  Serious: No
  Sender: FDA-Public Use
  Company Number: US-BRISTOL-MYERS SQUIBB COMPANY-13637178

PATIENT
  Age: 54 Year
  Sex: Male

DRUGS (1)
  1. DEFINITY [Suspect]
     Indication: STRESS ECHOCARDIOGRAM
     Dosage: 0.3CC
     Route: 040
     Dates: start: 20070108, end: 20070108

REACTIONS (3)
  - BACK PAIN [None]
  - CHEST DISCOMFORT [None]
  - FLUSHING [None]
